FAERS Safety Report 24545045 (Version 2)
Quarter: 2024Q4

REPORT INFORMATION
  Report Type: Report from Study
  Country: RO (occurrence: RO)
  Receive Date: 20241024
  Receipt Date: 20241106
  Transmission Date: 20250115
  Serious: Yes (Hospitalization)
  Sender: NOVARTIS
  Company Number: RO-002147023-NVSC2024RO207101

PATIENT
  Age: 73 Year
  Sex: Female

DRUGS (4)
  1. KISQALI [Suspect]
     Active Substance: RIBOCICLIB
     Indication: Breast mass
     Dosage: 600 MG, QD (200 MG 3 PER DAY)
     Route: 048
     Dates: start: 202405
  2. BISOPROLOL FUMARATE [Concomitant]
     Active Substance: BISOPROLOL FUMARATE
     Indication: Hypertension
     Dosage: 2.5 MG, QD
     Route: 065
  3. Noliprel [Concomitant]
     Indication: Hypertension
     Dosage: 2.5 MG, QD
     Route: 065
  4. LETROZOLE [Concomitant]
     Active Substance: LETROZOLE
     Indication: Breast cancer
     Dosage: 2.5 MG, QD
     Route: 065

REACTIONS (3)
  - Urinary tract infection [Unknown]
  - Product use in unapproved indication [Unknown]
  - Product availability issue [Recovered/Resolved]

NARRATIVE: CASE EVENT DATE: 20240901
